FAERS Safety Report 9826313 (Version 1)
Quarter: 2014Q1

REPORT INFORMATION
  Report Type: Spontaneous
  Country: US (occurrence: US)
  Receive Date: 20140117
  Receipt Date: 20140117
  Transmission Date: 20141002
  Serious: No
  Sender: FDA-Public Use
  Company Number: US-BIOGENIDEC-2014BI002651

PATIENT
  Age: 62 Year
  Sex: Male

DRUGS (9)
  1. TECFIDERA [Suspect]
     Indication: MULTIPLE SCLEROSIS
     Route: 048
     Dates: start: 20130511
  2. AMLODIPINE BESYLATE [Concomitant]
  3. ASPIRIN [Concomitant]
  4. DOCQLACE [Concomitant]
  5. HYDROCHLOROTHIAZIDE [Concomitant]
  6. MOTRIN IB [Concomitant]
  7. NEURONTIN [Concomitant]
  8. OXYCARBAZEPINE [Concomitant]
  9. PRAVASTATIN SODIUM [Concomitant]

REACTIONS (1)
  - Incorrect dose administered [Unknown]
